FAERS Safety Report 7866819-X (Version None)
Quarter: 2011Q4

REPORT INFORMATION
  Report Type: 
  Country: None (occurrence: None)
  Receive Date: 20111028
  Receipt Date: 20110829
  Transmission Date: 20120403
  Serious: No
  Sender: FDA-Public Use
  Company Number: US-GLAXOSMITHKLINE-A0942719A

PATIENT
  Age: 73 Year
  Sex: Female

DRUGS (6)
  1. VITAMIN D [Concomitant]
  2. ADVAIR DISKUS 100/50 [Suspect]
     Indication: HYPOXIA
     Dosage: 1PUFF PER DAY
     Route: 055
     Dates: start: 20110518, end: 20110519
  3. LEVOTHYROXINE SODIUM [Concomitant]
  4. METFORMIN HCL [Concomitant]
  5. AMLODIPINE [Concomitant]
  6. ASPIRIN [Concomitant]

REACTIONS (1)
  - CHEST PAIN [None]
